FAERS Safety Report 24609323 (Version 2)
Quarter: 2024Q4

REPORT INFORMATION
  Report Type: Spontaneous
  Country: CN (occurrence: CN)
  Receive Date: 20241112
  Receipt Date: 20241120
  Transmission Date: 20250114
  Serious: Yes (Hospitalization)
  Sender: BAYER HEALTHCARE PHARMACEUTICALS INC.
  Company Number: CN-BAYER-2024A159889

PATIENT
  Age: 71 Year
  Sex: Male

DRUGS (2)
  1. AVELOX [Suspect]
     Active Substance: MOXIFLOXACIN HYDROCHLORIDE
     Indication: Chronic obstructive pulmonary disease
     Dosage: 400 MG, QD
     Route: 048
     Dates: start: 20240525, end: 20240525
  2. AVELOX [Suspect]
     Active Substance: MOXIFLOXACIN HYDROCHLORIDE
     Indication: Lower respiratory tract infection

REACTIONS (10)
  - Tachypnoea [Recovering/Resolving]
  - Asthenia [Recovering/Resolving]
  - Rash erythematous [Recovering/Resolving]
  - Cold sweat [None]
  - Pharyngeal erythema [None]
  - Breath sounds abnormal [None]
  - Rales [None]
  - Heart rate increased [Recovered/Resolved]
  - Respiratory rate increased [None]
  - Dyspnoea [None]

NARRATIVE: CASE EVENT DATE: 20240525
